FAERS Safety Report 14529113 (Version 2)
Quarter: 2018Q2

REPORT INFORMATION
  Report Type: Spontaneous
  Country: US (occurrence: US)
  Receive Date: 20180214
  Receipt Date: 20180412
  Transmission Date: 20180711
  Serious: No
  Sender: FDA-Public Use
  Company Number: US-PFIZER INC-2018061222

PATIENT
  Age: 63 Year
  Sex: Female

DRUGS (1)
  1. LYRICA [Suspect]
     Active Substance: PREGABALIN
     Indication: NEUROPATHY PERIPHERAL
     Dosage: 75 MG, 3X/DAY
     Route: 048
     Dates: start: 20180126, end: 20180201

REACTIONS (1)
  - Lip swelling [Recovered/Resolved]

NARRATIVE: CASE EVENT DATE: 20180131
